FAERS Safety Report 9337882 (Version 1)
Quarter: 2013Q2

REPORT INFORMATION
  Report Type: Spontaneous
  Country: US (occurrence: US)
  Receive Date: 20130608
  Receipt Date: 20130608
  Transmission Date: 20140414
  Serious: Yes (Other)
  Sender: FDA-Public Use
  Company Number: US-PFIZER INC-2013172866

PATIENT
  Sex: 0

DRUGS (3)
  1. ZOLOFT [Suspect]
     Dosage: UNK
  2. NEURONTIN [Suspect]
     Dosage: 2400 MG, 1X/DAY
  3. DEPAKOTE [Suspect]
     Dosage: UNK

REACTIONS (3)
  - Hallucination [Unknown]
  - Delusion [Unknown]
  - Mental disorder [Unknown]
